FAERS Safety Report 23771946 (Version 1)
Quarter: 2024Q2

REPORT INFORMATION
  Report Type: Report from Study
  Country: CA (occurrence: CA)
  Receive Date: 20240423
  Receipt Date: 20240423
  Transmission Date: 20240715
  Serious: Yes (Hospitalization)
  Sender: FDA-Public Use
  Company Number: CA-CELLTRION INC.-2024CA008950

PATIENT

DRUGS (1)
  1. BEVACIZUMAB [Suspect]
     Active Substance: BEVACIZUMAB
     Indication: Glioblastoma
     Dosage: 290.0 MILLIGRAM 1 EVERY 2 WEEKS
     Route: 065

REACTIONS (3)
  - Oropharyngeal pain [Unknown]
  - Pyrexia [Unknown]
  - Intentional product use issue [Unknown]
